FAERS Safety Report 5860001-3 (Version None)
Quarter: 2008Q3

REPORT INFORMATION
  Report Type: 
  Country: None (occurrence: None)
  Receive Date: 20080827
  Receipt Date: 20080819
  Transmission Date: 20090109
  Serious: Yes (Hospitalization)
  Sender: FDA-Public Use
  Company Number: US-ELI_LILLY_AND_COMPANY-US200808003669

PATIENT
  Sex: Male
  Weight: 124.72 kg

DRUGS (8)
  1. BYETTA [Suspect]
     Indication: TYPE 2 DIABETES MELLITUS
     Dosage: 5 UG, 2/D
     Route: 058
     Dates: start: 20071201, end: 20080101
  2. AVANDAMET [Concomitant]
     Indication: TYPE 2 DIABETES MELLITUS
     Dosage: 1000 MG, AS NEEDED
  3. AMLODIPINE [Concomitant]
     Dosage: 10 MG, DAILY (1/D)
  4. VYTORIN [Concomitant]
     Dosage: UNK, DAILY (1/D)
  5. ALTACE [Concomitant]
     Dosage: 5 MG, DAILY (1/D)
  6. METOPROLOL TARTRATE [Concomitant]
     Dosage: 50 MG, DAILY (1/D)
  7. TRICOR [Concomitant]
     Dosage: 145 MG, DAILY (1/D)
  8. ALLOPURINOL [Concomitant]
     Dosage: 300 MG, DAILY (1/D)

REACTIONS (3)
  - ABDOMINAL PAIN UPPER [None]
  - NAUSEA [None]
  - RECTAL HAEMORRHAGE [None]
